FAERS Safety Report 25918112 (Version 1)
Quarter: 2025Q4

REPORT INFORMATION
  Report Type: Spontaneous
  Country: EU (occurrence: EU)
  Receive Date: 20251014
  Receipt Date: 20251014
  Transmission Date: 20260118
  Serious: Yes (Hospitalization, Other)
  Sender: AUROBINDO
  Company Number: EU-009507513-2320962

PATIENT
  Age: 87 Year
  Sex: Male
  Weight: 102 kg

DRUGS (3)
  1. PEMETREXED [Suspect]
     Active Substance: PEMETREXED
     Indication: Non-small cell lung cancer
     Dosage: 828 MILLIGRAM (THERAPY LINE: LINE 1)
     Route: 065
     Dates: start: 20250410, end: 20250508
  2. PEMBROLIZUMAB [Suspect]
     Active Substance: PEMBROLIZUMAB
     Indication: Non-small cell lung cancer
     Dosage: 200 MILLIGRAM (BAG: 13PAR061)
     Route: 065
     Dates: start: 20250115, end: 20250508
  3. DEXAMETHASONE [Concomitant]
     Active Substance: DEXAMETHASONE
     Indication: Product used for unknown indication
     Dosage: 8 MILLIGRAM, CYCLICAL (8 MG, PRO CYCLE)
     Route: 042
     Dates: start: 20250508

REACTIONS (4)
  - Oedema peripheral [Recovered/Resolved]
  - Interstitial lung disease [Recovered/Resolved]
  - Erythema [Recovered/Resolved]
  - Diarrhoea [Recovered/Resolved]

NARRATIVE: CASE EVENT DATE: 20250518
